FAERS Safety Report 18880545 (Version 9)
Quarter: 2022Q4

REPORT INFORMATION
  Report Type: Report from Study
  Country: US (occurrence: US)
  Receive Date: 20210211
  Receipt Date: 20221123
  Transmission Date: 20230113
  Serious: Yes (Other)
  Sender: FDA-Public Use
  Company Number: US-TAKEDA-US202034013

PATIENT
  Age: 44 Year
  Sex: Female

DRUGS (3)
  1. HUMAN IMMUNOGLOBULIN G [Suspect]
     Active Substance: HUMAN IMMUNOGLOBULIN G
     Indication: Primary immunodeficiency syndrome
     Dosage: 8 GRAM, 2/WEEK
     Route: 065
  2. HUMAN IMMUNOGLOBULIN G [Suspect]
     Active Substance: HUMAN IMMUNOGLOBULIN G
     Dosage: 16 GRAM, 1/WEEK
     Route: 065
  3. GAMUNEX-C [Concomitant]
     Active Substance: HUMAN IMMUNOGLOBULIN G
     Indication: Product used for unknown indication
     Dosage: UNK
     Route: 058

REACTIONS (29)
  - Pneumonia [Unknown]
  - Muscle rupture [Unknown]
  - Cerebrovascular accident [Unknown]
  - IgA nephropathy [Unknown]
  - Adverse drug reaction [Unknown]
  - Sinusitis [Recovering/Resolving]
  - Fall [Unknown]
  - Intervertebral disc degeneration [Unknown]
  - Arthritis [Unknown]
  - Renal disorder [Unknown]
  - Illness [Unknown]
  - Memory impairment [Unknown]
  - Infection [Unknown]
  - Hypersomnia [Unknown]
  - Sensitive skin [Unknown]
  - Dermatitis contact [Unknown]
  - Insomnia [Unknown]
  - Malaise [Unknown]
  - Pain [Not Recovered/Not Resolved]
  - Infusion site swelling [Unknown]
  - Headache [Not Recovered/Not Resolved]
  - Syringe issue [Unknown]
  - Vitamin D decreased [Unknown]
  - Migraine [Unknown]
  - Psoriasis [Unknown]
  - Infusion site extravasation [Unknown]
  - Nausea [Not Recovered/Not Resolved]
  - Supraventricular extrasystoles [Unknown]
  - Ventricular extrasystoles [Unknown]

NARRATIVE: CASE EVENT DATE: 20210201
